FAERS Safety Report 5879222-9 (Version None)
Quarter: 2008Q3

REPORT INFORMATION
  Report Type: 
  Country: None (occurrence: None)
  Receive Date: 20080912
  Receipt Date: 20080903
  Transmission Date: 20090109
  Serious: Yes (Other)
  Sender: FDA-Public Use
  Company Number: FR-AMGEN-US307030

PATIENT
  Sex: Male

DRUGS (11)
  1. ENBREL [Suspect]
     Indication: RHEUMATOID ARTHRITIS
     Route: 058
     Dates: start: 20050801
  2. TENORMIN [Concomitant]
     Dosage: UNKNOWN
     Route: 065
  3. MOPRAL [Concomitant]
     Dosage: UNKNOWN
     Route: 065
  4. RAMIPRIL [Concomitant]
     Dosage: UNKNOWN
     Route: 065
  5. CORTANCYL [Concomitant]
  6. DOLIPRANE [Concomitant]
     Dosage: UNKNOWN
     Route: 065
  7. GLUCOPHAGE [Concomitant]
     Dosage: UNKNOWN
     Route: 065
  8. DIFFU K [Concomitant]
     Dosage: UNKNOWN
     Route: 065
  9. METHOTREXATE [Concomitant]
     Dosage: 25 MG TOTAL WEEKLY
     Route: 048
  10. DIAMICRON [Concomitant]
     Dosage: UNKNOWN
     Route: 065
  11. IMOVANE [Concomitant]
     Dosage: UNKNOWN
     Route: 065

REACTIONS (5)
  - ATELECTASIS [None]
  - BRONCHITIS [None]
  - PLEURAL CALCIFICATION [None]
  - PLEURAL FIBROSIS [None]
  - PULMONARY GRANULOMA [None]
